FAERS Safety Report 11427849 (Version 1)
Quarter: 2015Q3

REPORT INFORMATION
  Report Type: Spontaneous
  Country: IN (occurrence: None)
  Receive Date: 20150826
  Receipt Date: 20150826
  Transmission Date: 20151125
  Serious: Yes (Other)
  Sender: FDA-Public Use
  Company Number: IN-2015VAL000535

PATIENT
  Age: 4 Month
  Sex: Male
  Weight: 62 kg

DRUGS (4)
  1. FENTANYL (FENTANYL) [Concomitant]
     Active Substance: FENTANYL
  2. NITROGLYCERIN SANDOZ (NITROGLYCERIN) [Suspect]
     Active Substance: NITROGLYCERIN
     Indication: HYPERTENSION
     Route: 042
  3. METOPROLOL TARTRATE. [Suspect]
     Active Substance: METOPROLOL TARTRATE
     Indication: HYPERTENSION
     Route: 042
  4. SODIUM NITROPRUSSIDE (NITROPRUSSIDE SODIUM) [Concomitant]

REACTIONS (2)
  - Blood pressure increased [None]
  - Therapeutic response decreased [None]
